FAERS Safety Report 23106215 (Version 1)
Quarter: 2023Q4

REPORT INFORMATION
  Report Type: Spontaneous
  Country: ES (occurrence: ES)
  Receive Date: 20231025
  Receipt Date: 20231025
  Transmission Date: 20240109
  Serious: Yes (Other)
  Sender: FDA-Public Use
  Company Number: None

PATIENT
  Age: 48 Year
  Sex: Male

DRUGS (3)
  1. GABAPENTIN [Interacting]
     Active Substance: GABAPENTIN
     Indication: Product used for unknown indication
     Dosage: UNK
     Route: 048
     Dates: start: 20230913, end: 20230913
  2. RIVOTRIL [Interacting]
     Active Substance: CLONAZEPAM
     Indication: Product used for unknown indication
     Dosage: STRENGTH: 2.5 MG/ML, 1 BOTTLE OF 10 ML
     Route: 048
     Dates: start: 20230913, end: 20230913
  3. QUETIAPINE [Interacting]
     Active Substance: QUETIAPINE
     Indication: Product used for unknown indication
     Dosage: 400 MILLIGRAM 1 TOTAL
     Route: 045
     Dates: start: 20230913, end: 20230913

REACTIONS (6)
  - Depressed level of consciousness [Recovered/Resolved]
  - Dysarthria [Recovered/Resolved]
  - Ataxia [Recovered/Resolved]
  - Intentional overdose [Recovered/Resolved]
  - Substance abuse [Unknown]
  - Drug interaction [Unknown]

NARRATIVE: CASE EVENT DATE: 20230913
